FAERS Safety Report 5133357-7 (Version None)
Quarter: 2006Q4

REPORT INFORMATION
  Report Type: 
  Country: None (occurrence: None)
  Receive Date: 20060831
  Receipt Date: 20060719
  Transmission Date: 20070319
  Serious: No
  Sender: FDA-Public Use
  Company Number: 2006-BP-08323BP

PATIENT
  Age: 72 Year
  Sex: Male

DRUGS (2)
  1. SPIRIVA [Suspect]
     Indication: CHRONIC OBSTRUCTIVE PULMONARY DISEASE
     Dosage: 18 MCG (18 MCG,1 IN 1 D),IH
     Dates: start: 20050101
  2. PHOSMAX [Concomitant]

REACTIONS (3)
  - BURNING SENSATION [None]
  - DIZZINESS [None]
  - NERVOUSNESS [None]
